FAERS Safety Report 16452043 (Version 18)
Quarter: 2022Q4

REPORT INFORMATION
  Report Type: Report from Study
  Country: GB (occurrence: GB)
  Receive Date: 20190619
  Receipt Date: 20221123
  Transmission Date: 20230113
  Serious: Yes (Hospitalization)
  Sender: FDA-Public Use
  Company Number: GB-EMA-DD-20180425-NSINGHEVHP-174913

PATIENT
  Age: 46 Year
  Sex: Female

DRUGS (66)
  1. TRASTUZUMAB [Suspect]
     Active Substance: TRASTUZUMAB
     Indication: HER2 positive breast cancer
     Dosage: 600 MILLIGRAM, Q3W
     Route: 042
     Dates: start: 20150420
  2. TRASTUZUMAB [Suspect]
     Active Substance: TRASTUZUMAB
     Indication: Breast cancer metastatic
  3. DOCETAXEL [Suspect]
     Active Substance: DOCETAXEL
     Indication: Breast cancer metastatic
     Dosage: 300 MILLIGRAM, Q3W
     Route: 042
     Dates: start: 20150421, end: 20150421
  4. DOCETAXEL [Suspect]
     Active Substance: DOCETAXEL
     Dosage: 120 MILLIGRAM, Q3W
     Route: 042
     Dates: start: 20150512, end: 20150804
  5. PERTUZUMAB [Suspect]
     Active Substance: PERTUZUMAB
     Indication: HER2 positive breast cancer
     Dosage: 420 MILLIGRAM, Q3W
     Route: 042
     Dates: start: 20150420
  6. PERTUZUMAB [Suspect]
     Active Substance: PERTUZUMAB
     Indication: Breast cancer metastatic
     Dosage: 840 MILLIGRAM, Q3W
     Route: 042
     Dates: start: 20150420
  7. LANOLIN\LIGHT MINERAL OIL\PARAFFIN [Concomitant]
     Active Substance: LANOLIN\LIGHT MINERAL OIL\PARAFFIN
     Indication: Pruritus
     Dosage: 1 TABLESPOON
     Route: 061
     Dates: start: 20150515
  8. LOPERAMIDE [Concomitant]
     Active Substance: LOPERAMIDE
     Indication: Product used for unknown indication
     Dosage: 2 MILLIGRAM, PRN
     Route: 048
     Dates: start: 20150516, end: 20150516
  9. MEGACE [Concomitant]
     Active Substance: MEGESTROL ACETATE
     Indication: Menopausal symptoms
     Dosage: 80 MILLIGRAM
     Route: 048
     Dates: start: 20150601
  10. MEGACE [Concomitant]
     Active Substance: MEGESTROL ACETATE
     Dosage: 160 MILLIGRAM, BID
     Route: 065
     Dates: start: 20150601
  11. DENOSUMAB [Concomitant]
     Active Substance: DENOSUMAB
     Dosage: 120 MILLIGRAM, MONTHLY
     Route: 058
     Dates: start: 20150623, end: 20170508
  12. HYDROCORTISONE [Concomitant]
     Active Substance: HYDROCORTISONE
     Indication: Eczema
     Dosage: 1 PERCENT CREAM
     Route: 065
  13. CALCEOS [Concomitant]
     Active Substance: CALCIUM CARBONATE\CHOLECALCIFEROL
     Indication: Product used for unknown indication
     Dosage: 1 DF, QD
     Route: 048
     Dates: start: 20150713, end: 20150824
  14. CALCEOS [Concomitant]
     Active Substance: CALCIUM CARBONATE\CHOLECALCIFEROL
     Dosage: 1 DF, QD
     Route: 048
     Dates: start: 20150713, end: 20150824
  15. CALCIUM CARBONATE\CHOLECALCIFEROL [Concomitant]
     Active Substance: CALCIUM CARBONATE\CHOLECALCIFEROL
     Indication: Product used for unknown indication
     Dosage: 2DF, QD
     Route: 048
     Dates: start: 20150623, end: 20150625
  16. CALCIUM CARBONATE\CHOLECALCIFEROL [Concomitant]
     Active Substance: CALCIUM CARBONATE\CHOLECALCIFEROL
     Dosage: 0.5 DAY
     Route: 048
     Dates: start: 20150623, end: 20150625
  17. CALCIUM CARBONATE\CHOLECALCIFEROL [Concomitant]
     Active Substance: CALCIUM CARBONATE\CHOLECALCIFEROL
     Dosage: 0.5 MILLIGRAM, QD, (0.5 MILLIGRAM)
     Route: 048
  18. OMEPRAZOLE [Concomitant]
     Active Substance: OMEPRAZOLE
     Indication: Gastrooesophageal reflux disease
     Dosage: 20 MILLIGRAM
     Route: 048
     Dates: start: 20150622
  19. GAVISCON [Concomitant]
     Active Substance: ALUMINUM HYDROXIDE\MAGNESIUM CARBONATE
     Indication: Product used for unknown indication
     Dosage: UNK
     Route: 065
  20. POLYETHYLENE GLYCOL 3350\POTASSIUM CHLORIDE\SODIUM BICARBONATE\SODIUM [Concomitant]
     Active Substance: POLYETHYLENE GLYCOL 3350\POTASSIUM CHLORIDE\SODIUM BICARBONATE\SODIUM CHLORIDE
     Indication: Influenza
     Dosage: 1 SACHET (2DF, QD)
     Route: 048
     Dates: start: 20180219, end: 20180220
  21. POLYETHYLENE GLYCOL 3350\POTASSIUM CHLORIDE\SODIUM BICARBONATE\SODIUM [Concomitant]
     Active Substance: POLYETHYLENE GLYCOL 3350\POTASSIUM CHLORIDE\SODIUM BICARBONATE\SODIUM CHLORIDE
     Dosage: 0.5 DAY(1 SACHET)
     Route: 048
     Dates: start: 20180219, end: 20180220
  22. POLYETHYLENE GLYCOL 3350\POTASSIUM CHLORIDE\SODIUM BICARBONATE\SODIUM [Concomitant]
     Active Substance: POLYETHYLENE GLYCOL 3350\POTASSIUM CHLORIDE\SODIUM BICARBONATE\SODIUM CHLORIDE
     Dosage: 2 DOSAGE FORM, QD, (1 SACHET (2DF, QD))
     Route: 048
     Dates: start: 20180219, end: 20180220
  23. IBUPROFEN [Concomitant]
     Active Substance: IBUPROFEN
     Indication: Spinal pain
     Dosage: 400 MILLIGRAM, PRN
     Route: 048
     Dates: start: 20161229
  24. AMOXICILLIN\CLAVULANATE POTASSIUM [Concomitant]
     Active Substance: AMOXICILLIN\CLAVULANATE POTASSIUM
     Indication: Influenza
     Dosage: 1875 MILLIGRAM, QD
     Route: 048
     Dates: start: 20180225, end: 20180225
  25. AMOXICILLIN\CLAVULANATE POTASSIUM [Concomitant]
     Active Substance: AMOXICILLIN\CLAVULANATE POTASSIUM
     Dosage: 625 MILLIGRAM, QD
     Route: 048
     Dates: start: 20180220, end: 20180225
  26. AMOXICILLIN\CLAVULANATE POTASSIUM [Concomitant]
     Active Substance: AMOXICILLIN\CLAVULANATE POTASSIUM
     Dosage: 1875 MILLIGRAM, QD
     Route: 048
     Dates: start: 20180220, end: 20180225
  27. ENOXAPARIN [Concomitant]
     Active Substance: ENOXAPARIN
     Indication: Influenza
     Dosage: 40 MILLIGRAM
     Route: 058
     Dates: start: 20180219, end: 20180220
  28. XGEVA [Concomitant]
     Active Substance: DENOSUMAB
     Indication: Product used for unknown indication
     Dosage: 120 MILLIGRAM, BID
     Route: 048
     Dates: start: 20180115
  29. XGEVA [Concomitant]
     Active Substance: DENOSUMAB
     Dosage: 120 MILLIGRAM, Q12HR/BID
     Route: 048
  30. XGEVA [Concomitant]
     Active Substance: DENOSUMAB
     Dosage: 240 MILLIGRAM, QD
     Route: 048
     Dates: start: 20180115
  31. XGEVA [Concomitant]
     Active Substance: DENOSUMAB
     Dosage: 120 MILLIGRAM, MONTHLY
     Route: 048
     Dates: start: 20150623, end: 20170508
  32. SENNA [Concomitant]
     Active Substance: SENNA LEAF\SENNOSIDES\SENNOSIDES A AND B
     Indication: Influenza
     Dosage: 1 SACHET (1DF, QD)
     Route: 048
     Dates: start: 20180219, end: 20180220
  33. TAMIFLU [Concomitant]
     Active Substance: OSELTAMIVIR PHOSPHATE
     Indication: Influenza
     Dosage: 75 MILLIGRAM, QD
     Route: 048
     Dates: start: 20180219, end: 20180226
  34. TAMIFLU [Concomitant]
     Active Substance: OSELTAMIVIR PHOSPHATE
     Dosage: 150 MILLIGRAM, QD
     Route: 048
     Dates: start: 20180219, end: 20180226
  35. ACYCLOVIR [Concomitant]
     Active Substance: ACYCLOVIR
     Indication: Genital herpes
     Dosage: 200 MILLIGRAM, QD
     Route: 048
     Dates: start: 20170211, end: 20170218
  36. ACYCLOVIR [Concomitant]
     Active Substance: ACYCLOVIR
     Dosage: 200 MILLIGRAM, QID
     Route: 048
     Dates: start: 20170211, end: 20170218
  37. ACYCLOVIR [Concomitant]
     Active Substance: ACYCLOVIR
     Dosage: 800 MILLIGRAM, QD
     Route: 048
     Dates: start: 20170211, end: 20170218
  38. ACYCLOVIR [Concomitant]
     Active Substance: ACYCLOVIR
     Dosage: 800 MILLIGRAM, QD, 200 MILLIGRAM,QID)
     Route: 048
     Dates: start: 20170211, end: 20170218
  39. AMOXIL [Concomitant]
     Active Substance: AMOXICILLIN
     Indication: Lower respiratory tract infection
     Dosage: 500 MILLIGRAM, QD
     Route: 048
     Dates: start: 20171227, end: 20180102
  40. AMOXICILLIN [Concomitant]
     Active Substance: AMOXICILLIN
     Indication: Influenza
     Dosage: 625 MILLIGRAM, QD
     Route: 048
     Dates: start: 20180220, end: 20180225
  41. AMOXICILLIN [Concomitant]
     Active Substance: AMOXICILLIN
     Indication: Lower respiratory tract infection
     Dosage: 500 MILLIGRAM, QD
     Route: 048
     Dates: start: 20171227, end: 20180102
  42. AMOXICILLIN [Concomitant]
     Active Substance: AMOXICILLIN
     Indication: Chest pain
  43. DOMPERIDONE [Concomitant]
     Active Substance: DOMPERIDONE
     Dosage: 10 MILLIGRAM, QD
     Route: 048
     Dates: start: 20150420, end: 20150427
  44. RANITIDINE [Concomitant]
     Active Substance: RANITIDINE
     Dosage: 150 MILLIGRAM, QD
     Route: 048
     Dates: start: 20150421
  45. CODEINE [Concomitant]
     Active Substance: CODEINE
     Dosage: 30 MILLIGRAM
     Route: 048
     Dates: start: 20160816
  46. CODEINE [Concomitant]
     Active Substance: CODEINE
     Dosage: 30 MILLIGRAM
     Route: 048
     Dates: start: 20151221, end: 20160425
  47. SODIUM CHLORIDE [Concomitant]
     Active Substance: SODIUM CHLORIDE
     Indication: Abdominal pain
     Dosage: 1000 MILLILITER, PM, PRN, (1000 ML, AS NEEDED)
     Route: 042
     Dates: start: 20160125, end: 20160125
  48. ALTHAEA EXTRACT [Concomitant]
     Dosage: UNK
     Route: 061
     Dates: start: 20181112
  49. ZOPICLONE [Concomitant]
     Active Substance: ZOPICLONE
     Dosage: 3.75 MILLIGRAM
     Route: 048
     Dates: start: 20151019
  50. AMOXICILLIN\CLAVULANATE POTASSIUM [Concomitant]
     Active Substance: AMOXICILLIN\CLAVULANATE POTASSIUM
     Indication: Influenza
     Dosage: 625 MILLIGRAM, QD, (625 MG, QD)
     Route: 048
     Dates: start: 20180220, end: 20180225
  51. AMOXIL [Concomitant]
     Active Substance: AMOXICILLIN
     Indication: Lower respiratory tract infection
     Dosage: 500 MILLIGRAM, QD, (500 MG, QD)
     Route: 048
     Dates: start: 20171227, end: 20180102
  52. ACETAMINOPHEN [Concomitant]
     Active Substance: ACETAMINOPHEN
     Dosage: 1 GRAM, QD
     Route: 048
     Dates: start: 20180218, end: 20180220
  53. ACETAMINOPHEN [Concomitant]
     Active Substance: ACETAMINOPHEN
     Dosage: 1 GRAM, QD
     Route: 048
     Dates: start: 20150420, end: 20180217
  54. ACETAMINOPHEN [Concomitant]
     Active Substance: ACETAMINOPHEN
     Dosage: 1 GRAM, QD
     Route: 048
     Dates: start: 20150427, end: 20150505
  55. PIPERACILLIN SODIUM\TAZOBACTAM SODIUM [Concomitant]
     Active Substance: PIPERACILLIN SODIUM\TAZOBACTAM SODIUM
     Dosage: 4.5 GRAM, QD
     Route: 042
     Dates: start: 20180218, end: 20180220
  56. PIPERACILLIN SODIUM\TAZOBACTAM SODIUM [Concomitant]
     Active Substance: PIPERACILLIN SODIUM\TAZOBACTAM SODIUM
     Dosage: 4.5 GRAM, QD
     Route: 042
     Dates: start: 20150429
  57. PFIZER-BIONTECH COVID-19 VACCINE [Concomitant]
     Active Substance: TOZINAMERAN
     Dosage: 30 MICROGRAM
     Route: 030
     Dates: start: 20210204, end: 20210204
  58. PFIZER-BIONTECH COVID-19 VACCINE [Concomitant]
     Active Substance: TOZINAMERAN
     Dosage: 30 MICROGRAM
     Route: 030
     Dates: start: 20210422, end: 20210422
  59. NAPROXEN [Concomitant]
     Active Substance: NAPROXEN
     Dosage: 500 MILLIGRAM, QD
     Route: 048
     Dates: start: 20180218, end: 20180220
  60. NAPROXEN [Concomitant]
     Active Substance: NAPROXEN
     Dosage: 500 MILLIGRAM, QD
     Route: 048
     Dates: start: 2015, end: 20160314
  61. NAPROXEN [Concomitant]
     Active Substance: NAPROXEN
     Dosage: 500 MILLIGRAM, QD
     Route: 048
     Dates: start: 2015, end: 20160314
  62. NAPROXEN [Concomitant]
     Active Substance: NAPROXEN
     Dosage: 250 MILLIGRAM
     Route: 048
     Dates: start: 2015, end: 20160314
  63. AVEENO [Concomitant]
     Active Substance: DIMETHICONE\HOMOSALATE\OCTINOXATE\OCTISALATE\TITANIUM DIOXIDE
     Indication: Eczema
     Dosage: UNK
     Route: 061
     Dates: start: 20190114
  64. IBUPROFEN [Concomitant]
     Active Substance: IBUPROFEN
     Dosage: 200 MILLIGRAM, QD
     Route: 048
     Dates: start: 20150420, end: 20150420
  65. VASELINE PURE [Concomitant]
     Active Substance: PETROLATUM
     Dosage: UNK, (1 TBSP TABLESPOON)
     Route: 061
     Dates: start: 20160816
  66. METHYL SALICYLATE [Concomitant]
     Active Substance: METHYL SALICYLATE
     Dosage: UNK, PRN (AS NECESSARY)
     Route: 065
     Dates: start: 20161229

REACTIONS (21)
  - Ovarian cyst [Recovered/Resolved]
  - Neutropenic sepsis [Recovered/Resolved]
  - Mood swings [Recovered/Resolved]
  - Night sweats [Not Recovered/Not Resolved]
  - Glossodynia [Unknown]
  - Sleep disorder [Unknown]
  - Gastrooesophageal reflux disease [Recovered/Resolved]
  - Hypoaesthesia oral [Recovered/Resolved]
  - Lethargy [Not Recovered/Not Resolved]
  - Eczema [Recovered/Resolved]
  - Gastritis [Recovered/Resolved]
  - Dry eye [Unknown]
  - Pruritus [Unknown]
  - Decreased appetite [Recovered/Resolved]
  - Headache [Recovered/Resolved]
  - Epistaxis [Not Recovered/Not Resolved]
  - Dysgeusia [Recovered/Resolved]
  - Nausea [Recovered/Resolved]
  - Constipation [Recovered/Resolved]
  - Arthralgia [Recovered/Resolved with Sequelae]
  - Abdominal pain [Recovered/Resolved]

NARRATIVE: CASE EVENT DATE: 20150420
